FAERS Safety Report 9304284 (Version 2)
Quarter: 2013Q3

REPORT INFORMATION
  Report Type: Spontaneous
  Country: US (occurrence: US)
  Receive Date: 20130522
  Receipt Date: 20130722
  Transmission Date: 20140515
  Serious: No
  Sender: FDA-Public Use
  Company Number: US-PFIZER INC-2013155644

PATIENT
  Age: 55 Year
  Sex: Female

DRUGS (8)
  1. SERTRALINE HCL [Suspect]
     Indication: ANXIETY
     Dosage: 50 MG, 1X/DAY
     Route: 048
     Dates: start: 2007
  2. SERTRALINE HCL [Suspect]
     Indication: DEPRESSION
  3. ASA [Concomitant]
     Dosage: UNK
  4. CUMADIN [Concomitant]
     Dosage: UNK
  5. FOLIC ACID [Concomitant]
     Dosage: UNK
  6. VITAMIN C [Concomitant]
     Dosage: UNK
  7. ARMOUR THYROID [Concomitant]
     Dosage: UNK
  8. CALCIUM [Concomitant]

REACTIONS (2)
  - Drug ineffective [Unknown]
  - Feeling abnormal [Recovered/Resolved]
